FAERS Safety Report 13248333 (Version 1)
Quarter: 2017Q1

REPORT INFORMATION
  Report Type: Spontaneous
  Country: US (occurrence: US)
  Receive Date: 20170218
  Receipt Date: 20170218
  Transmission Date: 20170428
  Serious: No
  Sender: FDA-Public Use
  Company Number: US-ALLERGAN-1661921US

PATIENT
  Age: 54 Year
  Sex: Female

DRUGS (4)
  1. ATORVASTATIN [Concomitant]
     Active Substance: ATORVASTATIN
     Indication: HYPERCHOLESTEROLAEMIA
     Dosage: 20 MG, 3 X WEEK
     Route: 048
  2. FOSAMAX PLUS D [Concomitant]
     Active Substance: ALENDRONATE SODIUM\CHOLECALCIFEROL
     Indication: OSTEOPENIA
     Dosage: UNK, Q WEEK
     Route: 048
  3. RESTASIS [Suspect]
     Active Substance: CYCLOSPORINE
     Indication: BLEPHARITIS
     Dosage: 2 GTT, BID
     Route: 047
     Dates: start: 201604, end: 201605
  4. RESTASIS [Suspect]
     Active Substance: CYCLOSPORINE
     Indication: DRY EYE
     Dosage: 1 GTT, BID
     Route: 047
     Dates: start: 201602, end: 201603

REACTIONS (4)
  - Eye pain [Recovered/Resolved]
  - Ocular hyperaemia [Recovered/Resolved]
  - Off label use [Unknown]
  - Incorrect product storage [Unknown]

NARRATIVE: CASE EVENT DATE: 201602
